FAERS Safety Report 25120843 (Version 2)
Quarter: 2025Q2

REPORT INFORMATION
  Report Type: Spontaneous
  Country: US (occurrence: None)
  Receive Date: 20250325
  Receipt Date: 20250402
  Transmission Date: 20250716
  Serious: Yes (Other)
  Sender: MDD OPERATIONS
  Company Number: US-MDD US Operations-MDD202503-000890

PATIENT
  Age: 69 Year
  Sex: Male

DRUGS (12)
  1. APOKYN [Suspect]
     Active Substance: APOMORPHINE HYDROCHLORIDE
     Indication: Parkinson^s disease
     Dates: start: 202404
  2. RYTARY [Concomitant]
     Active Substance: CARBIDOPA\LEVODOPA
  3. CARBIDOPA\LEVODOPA [Concomitant]
     Active Substance: CARBIDOPA\LEVODOPA
  4. PRAMIPEXOLE [Concomitant]
     Active Substance: PRAMIPEXOLE
  5. ELIQUIS [Concomitant]
     Active Substance: APIXABAN
  6. QUETIAPINE [Concomitant]
     Active Substance: QUETIAPINE
  7. RASAGILINE [Concomitant]
     Active Substance: RASAGILINE
  8. ATORVASTATIN [Concomitant]
     Active Substance: ATORVASTATIN
  9. TAMSULOSIN [Concomitant]
     Active Substance: TAMSULOSIN
  10. LORAZEPAM [Concomitant]
     Active Substance: LORAZEPAM
  11. OZEMPIC [Concomitant]
     Active Substance: SEMAGLUTIDE
  12. PROLIA [Concomitant]
     Active Substance: DENOSUMAB

REACTIONS (5)
  - Loss of consciousness [Recovered/Resolved]
  - Hypotension [Recovered/Resolved]
  - Fall [Recovered/Resolved]
  - Product dose omission issue [Unknown]
  - Inappropriate schedule of product administration [Unknown]

NARRATIVE: CASE EVENT DATE: 20250308
